FAERS Safety Report 17437796 (Version 1)
Quarter: 2020Q1

REPORT INFORMATION
  Report Type: Spontaneous
  Country: GB (occurrence: GB)
  Receive Date: 20200219
  Receipt Date: 20200219
  Transmission Date: 20200409
  Serious: Yes (Other)
  Sender: FDA-Public Use
  Company Number: GB-TEVA-2020-GB-1188422

PATIENT
  Age: 70 Year
  Sex: Female
  Weight: 80 kg

DRUGS (7)
  1. CELEBREX [Concomitant]
     Active Substance: CELECOXIB
     Route: 065
  2. BACLOFEN. [Suspect]
     Active Substance: BACLOFEN
     Dosage: 30 MG
     Route: 065
  3. DHC-CONTINUS [Suspect]
     Active Substance: DIHYDROCODEINE BITARTRATE
     Indication: INTERVERTEBRAL DISC DEGENERATION
     Dosage: 180 MG
     Route: 048
     Dates: start: 20200103
  4. QUININE [Concomitant]
     Active Substance: QUININE
     Dosage: 400 MG
     Route: 065
  5. CLOPIDOGREL ZENTIVA [Concomitant]
     Active Substance: CLOPIDOGREL BISULFATE
     Route: 065
  6. TEMAZEPAM. [Suspect]
     Active Substance: TEMAZEPAM
     Indication: SLEEP DISORDER
     Dosage: 10 MG
     Route: 048
     Dates: start: 20200103
  7. OMEPRAZOLE. [Concomitant]
     Active Substance: OMEPRAZOLE
     Route: 065

REACTIONS (5)
  - Somnolence [Unknown]
  - Hallucination [Recovered/Resolved]
  - Pain [Not Recovered/Not Resolved]
  - Nightmare [Not Recovered/Not Resolved]
  - Insomnia [Not Recovered/Not Resolved]

NARRATIVE: CASE EVENT DATE: 20200114
